FAERS Safety Report 5589207-8 (Version None)
Quarter: 2008Q1

REPORT INFORMATION
  Report Type: 
  Country: None (occurrence: None)
  Receive Date: 20080109
  Receipt Date: 20080104
  Transmission Date: 20080703
  Serious: Yes (Hospitalization, Other)
  Sender: FDA-Public Use
  Company Number: 2007SP025203

PATIENT
  Age: 44 Year
  Sex: Female

DRUGS (6)
  1. INTRON A [Suspect]
     Indication: MALIGNANT MELANOMA
     Dates: start: 20070507, end: 20070601
  2. INTRON A [Suspect]
     Indication: MALIGNANT MELANOMA
     Dates: start: 20070601
  3. SYNTHROID [Concomitant]
  4. ZOLOFT [Concomitant]
  5. PLAQUENIL [Concomitant]
  6. ARAVA [Concomitant]

REACTIONS (8)
  - AGGRESSION [None]
  - BLOOD GLUCOSE DECREASED [None]
  - BLOOD THYROID STIMULATING HORMONE ABNORMAL [None]
  - DISEASE PROGRESSION [None]
  - DISORIENTATION [None]
  - FALL [None]
  - LOSS OF CONSCIOUSNESS [None]
  - PALLOR [None]
